FAERS Safety Report 15046326 (Version 4)
Quarter: 2018Q3

REPORT INFORMATION
  Report Type: Spontaneous
  Country: US (occurrence: US)
  Receive Date: 20180621
  Receipt Date: 20180723
  Transmission Date: 20181010
  Serious: No
  Sender: FDA-Public Use
  Company Number: US-009507513-1806USA009457

PATIENT
  Age: 23 Year
  Sex: Female
  Weight: 57.14 kg

DRUGS (1)
  1. NEXPLANON [Suspect]
     Active Substance: ETONOGESTREL
     Indication: CONTRACEPTION
     Dosage: 1 DF, UNK
     Route: 059
     Dates: start: 20151102

REACTIONS (2)
  - Implant site bruising [Recovering/Resolving]
  - Implant site swelling [Recovering/Resolving]

NARRATIVE: CASE EVENT DATE: 2018
